FAERS Safety Report 5093811-3 (Version None)
Quarter: 2006Q3

REPORT INFORMATION
  Report Type: 
  Country: None (occurrence: None)
  Receive Date: 20060831
  Receipt Date: 20060824
  Transmission Date: 20061208
  Serious: Yes (Death)
  Sender: FDA-Public Use
  Company Number: PHFR2006GB02645

PATIENT

DRUGS (1)
  1. TEGRETOL [Suspect]
     Dosage: 200 MG IN ERROR

REACTIONS (3)
  - DEATH [None]
  - INCORRECT DOSE ADMINISTERED [None]
  - MEDICATION ERROR [None]
